FAERS Safety Report 8479558-1 (Version None)
Quarter: 2012Q2

REPORT INFORMATION
  Report Type: 
  Country: None (occurrence: None)
  Receive Date: 20120629
  Receipt Date: 20120618
  Transmission Date: 20120825
  Serious: Yes (Other)
  Sender: FDA-Public Use
  Company Number: JP-VERTEX PHARMACEUTICALS INC.-AE-2012-007662

PATIENT
  Age: 46 Year
  Sex: Female

DRUGS (11)
  1. LOSARTAN POTASSIUM [Concomitant]
     Route: 048
  2. TELAVIC (TELAPREVIR) [Suspect]
     Route: 048
     Dates: start: 20120321, end: 20120327
  3. MUCOSTA [Concomitant]
     Route: 048
  4. FAMOTIDINE [Concomitant]
     Route: 048
  5. MARZULENE-S [Concomitant]
     Route: 048
  6. TELAVIC (TELAPREVIR) [Suspect]
     Indication: HEPATITIS C
     Route: 048
     Dates: start: 20120208, end: 20120320
  7. RIBAVIRIN [Concomitant]
     Indication: HEPATITIS C
     Route: 048
     Dates: start: 20120208, end: 20120228
  8. RIBAVIRIN [Concomitant]
     Route: 048
     Dates: start: 20120307, end: 20120327
  9. RIBAVIRIN [Concomitant]
     Route: 048
     Dates: start: 20120229, end: 20120306
  10. PEGINTERFERON ALFA-2B [Concomitant]
     Indication: HEPATITIS C
     Route: 058
     Dates: start: 20120208, end: 20120328
  11. SITAGLIPTIN PHOSPHATE [Concomitant]
     Route: 048

REACTIONS (2)
  - HAEMOGLOBIN DECREASED [None]
  - RETINOPATHY [None]
